FAERS Safety Report 5479114-3 (Version None)
Quarter: 2007Q4

REPORT INFORMATION
  Report Type: 
  Country: None (occurrence: None)
  Receive Date: 20071006
  Receipt Date: 20070927
  Transmission Date: 20080405
  Serious: Yes (Hospitalization, Other)
  Sender: FDA-Public Use
  Company Number: US-PFIZER INC-2007081717

PATIENT
  Sex: Female
  Weight: 62.7 kg

DRUGS (1)
  1. DETROL [Suspect]
     Indication: BLADDER PROLAPSE
     Dosage: DAILY DOSE:4MG

REACTIONS (1)
  - ANGINA PECTORIS [None]
